FAERS Safety Report 7728664-5 (Version None)
Quarter: 2011Q3

REPORT INFORMATION
  Report Type: 
  Country: None (occurrence: None)
  Receive Date: 20110831
  Receipt Date: 20110831
  Transmission Date: 20111222
  Serious: Yes (Hospitalization)
  Sender: FDA-Public Use
  Company Number: None

PATIENT
  Age: 54 Year
  Sex: Male
  Weight: 66.8 kg

DRUGS (2)
  1. PIPERACILLIN AND TAZOBACTAM [Suspect]
     Dosage: 3.375 GM QID IV
     Route: 042
     Dates: start: 20110722, end: 20110805
  2. SULFAMETHOXAZOLE AND TRIMETHOPRIM [Suspect]
     Dosage: 2 TAB TID PO
     Route: 048
     Dates: start: 20110725, end: 20110804

REACTIONS (3)
  - BLOOD UREA INCREASED [None]
  - EOSINOPHILS URINE [None]
  - BLOOD CREATININE INCREASED [None]
